FAERS Safety Report 22153079 (Version 2)
Quarter: 2023Q2

REPORT INFORMATION
  Report Type: Report from Study
  Country: US (occurrence: US)
  Receive Date: 20230329
  Receipt Date: 20230626
  Transmission Date: 20230722
  Serious: Yes (Other)
  Sender: FDA-Public Use
  Company Number: US-BAYER-2023A014411

PATIENT
  Age: 61 Year
  Sex: Female

DRUGS (3)
  1. STIVARGA [Suspect]
     Active Substance: REGORAFENIB
     Indication: Gastrointestinal stromal tumour
     Dosage: DAILY DOSE 80 MG
     Route: 048
     Dates: start: 20230116
  2. STIVARGA [Suspect]
     Active Substance: REGORAFENIB
     Indication: Rectal cancer
     Dosage: 40 MG, QD
     Route: 048
  3. METHOCARBAMOL [Concomitant]
     Active Substance: METHOCARBAMOL

REACTIONS (17)
  - Hypertension [None]
  - Arterial disorder [None]
  - Gait inability [Unknown]
  - Pain in extremity [Unknown]
  - Palmar-plantar erythrodysaesthesia syndrome [Unknown]
  - Blister [Unknown]
  - Left ventricular hypertrophy [None]
  - Limb injury [None]
  - Skin fissures [None]
  - Blood cholesterol increased [None]
  - Liver disorder [None]
  - Muscle spasms [None]
  - Product dose omission issue [None]
  - Off label use [None]
  - Dysphonia [Unknown]
  - Decreased appetite [Unknown]
  - Pain in extremity [Unknown]

NARRATIVE: CASE EVENT DATE: 20230116
